FAERS Safety Report 9793574 (Version 1)
Quarter: 2014Q1

REPORT INFORMATION
  Report Type: Spontaneous
  Country: US (occurrence: US)
  Receive Date: 20140102
  Receipt Date: 20140102
  Transmission Date: 20141002
  Serious: No
  Sender: FDA-Public Use
  Company Number: US-AMGEN-USASP2013086078

PATIENT
  Age: 50 Year
  Sex: Female

DRUGS (7)
  1. ENBREL [Suspect]
     Indication: PRODUCT USED FOR UNKNOWN INDICATION
     Dosage: UNK
     Route: 065
  2. SULFASALAZINE [Concomitant]
     Dosage: UNK
  3. PREDNISONE [Concomitant]
     Dosage: UNK
  4. ERGOCALCIFEROL [Concomitant]
     Dosage: UNK
  5. LYRICA [Concomitant]
     Dosage: 50 MG, UNK
  6. HYDROXYCHLOROQUINE [Concomitant]
     Dosage: UNK
  7. OMEPRAZOLE [Concomitant]
     Dosage: UNK

REACTIONS (1)
  - Drug hypersensitivity [Unknown]
